FAERS Safety Report 14119355 (Version 1)
Quarter: 2017Q4

REPORT INFORMATION
  Report Type: Spontaneous
  Country: US (occurrence: US)
  Receive Date: 20171023
  Receipt Date: 20171023
  Transmission Date: 20180321
  Serious: Yes (Disabling)
  Sender: FDA-Public Use
  Company Number: None

PATIENT
  Age: 36 Year
  Sex: Female
  Weight: 63 kg

DRUGS (1)
  1. CIPROFLOXACIN. [Suspect]
     Active Substance: CIPROFLOXACIN
     Indication: URINARY TRACT INFECTION
     Dosage: ?          QUANTITY:1 TABLET(S);?
     Route: 048
     Dates: start: 20170425, end: 20170425

REACTIONS (8)
  - Paraesthesia [None]
  - Hypoaesthesia [None]
  - Headache [None]
  - Palpitations [None]
  - Insomnia [None]
  - Hallucination [None]
  - Amnesia [None]
  - Hyperacusis [None]

NARRATIVE: CASE EVENT DATE: 20170425
